FAERS Safety Report 6650092-4 (Version None)
Quarter: 2010Q1

REPORT INFORMATION
  Report Type: 
  Country: None (occurrence: None)
  Receive Date: 20100325
  Receipt Date: 20100311
  Transmission Date: 20100710
  Serious: Yes (Hospitalization)
  Sender: FDA-Public Use
  Company Number: FR-RANBAXY-2010RR-32607

PATIENT

DRUGS (5)
  1. PROPRANOLOL [Suspect]
     Dosage: 2 G, UNK
  2. MEPROBAMATE [Suspect]
     Dosage: UNK G, UNK
  3. PAROXETINE HCL [Suspect]
  4. PARACETAMOL [Suspect]
  5. DEXTROPROPOXYFENE [Suspect]

REACTIONS (3)
  - CARDIOGENIC SHOCK [None]
  - MULTIPLE DRUG OVERDOSE [None]
  - OVERDOSE [None]
